FAERS Safety Report 13527740 (Version 1)
Quarter: 2017Q2

REPORT INFORMATION
  Report Type: Report from Study
  Country: None (occurrence: US)
  Receive Date: 20170509
  Receipt Date: 20170509
  Transmission Date: 20170830
  Serious: Yes (Hospitalization, Other)
  Sender: FDA-Public Use
  Company Number: US-ABBVIE-17K-163-1911891-00

PATIENT
  Age: 65 Year
  Sex: Female

DRUGS (1)
  1. HUMIRA [Suspect]
     Active Substance: ADALIMUMAB
     Indication: RHEUMATOID ARTHRITIS
     Route: 058
     Dates: start: 201604

REACTIONS (9)
  - Tendon rupture [Not Recovered/Not Resolved]
  - Pneumonia [Recovered/Resolved]
  - Mass [Recovered/Resolved]
  - Arthritis [Not Recovered/Not Resolved]
  - Pain [Recovered/Resolved]
  - Joint lock [Recovered/Resolved]
  - Trigger finger [Not Recovered/Not Resolved]
  - Rotator cuff syndrome [Not Recovered/Not Resolved]
  - Lung infection [Recovered/Resolved]

NARRATIVE: CASE EVENT DATE: 201701
